FAERS Safety Report 18131397 (Version 1)
Quarter: 2020Q3

REPORT INFORMATION
  Report Type: Spontaneous
  Country: US (occurrence: US)
  Receive Date: 20200810
  Receipt Date: 20200810
  Transmission Date: 20201103
  Serious: No
  Sender: FDA-Public Use
  Company Number: US-VERTEX PHARMACEUTICALS-2020-015970

PATIENT
  Age: 3 Year
  Sex: Male
  Weight: 14 kg

DRUGS (4)
  1. ORKAMBI [Suspect]
     Active Substance: IVACAFTOR\LUMACAFTOR
     Indication: CYSTIC FIBROSIS
     Dosage: GIVE 1 PACKET WITH HIGH FAT MEAL EVERY 12 HOURS
     Route: 048
     Dates: start: 20190408
  2. ALBUTEROL SULFATE. [Concomitant]
     Active Substance: ALBUTEROL SULFATE
  3. PERTZYE [Concomitant]
     Active Substance: PANCRELIPASE AMYLASE\PANCRELIPASE LIPASE\PANCRELIPASE PROTEASE
     Dosage: 16K?57.5K CAPSULE DR
  4. HYPERSAL [Concomitant]
     Active Substance: SODIUM CHLORIDE
     Dosage: 3.5% VIAL?NEB

REACTIONS (1)
  - Pyrexia [Not Recovered/Not Resolved]

NARRATIVE: CASE EVENT DATE: 202007
